FAERS Safety Report 16240778 (Version 1)
Quarter: 2019Q2

REPORT INFORMATION
  Report Type: Spontaneous
  Country: US (occurrence: US)
  Receive Date: 20190425
  Receipt Date: 20190425
  Transmission Date: 20190711
  Serious: Yes (Other)
  Sender: FDA-Public Use
  Company Number: PHEH2019US017404

PATIENT

DRUGS (2)
  1. ZOMETA [Suspect]
     Active Substance: ZOLEDRONIC ACID
     Indication: PRODUCT USED FOR UNKNOWN INDICATION
     Dosage: UNK
     Route: 065
  2. IBRANCE [Suspect]
     Active Substance: PALBOCICLIB
     Indication: BREAST CANCER
     Dosage: 125 MG, QD
     Route: 048
     Dates: start: 20190314

REACTIONS (9)
  - Thrombocytopenia [Not Recovered/Not Resolved]
  - Oral pain [Unknown]
  - Constipation [Unknown]
  - Anaemia [Not Recovered/Not Resolved]
  - Bone pain [Unknown]
  - Hot flush [Not Recovered/Not Resolved]
  - Vomiting [Unknown]
  - Insomnia [Recovering/Resolving]
  - Diarrhoea [Not Recovered/Not Resolved]

NARRATIVE: CASE EVENT DATE: 20190320
